FAERS Safety Report 9388601 (Version 2)
Quarter: 2014Q2

REPORT INFORMATION
  Report Type: Spontaneous
  Country: US (occurrence: US)
  Receive Date: 20130708
  Receipt Date: 20140602
  Transmission Date: 20141212
  Serious: Yes (Death, Hospitalization)
  Sender: FDA-Public Use
  Company Number: US-GLAXOSMITHKLINE-A1031144A

PATIENT
  Sex: Female

DRUGS (1)
  1. AVANDIA [Suspect]
     Indication: DIABETES MELLITUS
     Route: 048
     Dates: start: 20030910

REACTIONS (5)
  - Death [Fatal]
  - Coronary artery bypass [Unknown]
  - Scleroderma [Unknown]
  - Pulmonary fibrosis [Unknown]
  - Depression [Unknown]
